FAERS Safety Report 22900948 (Version 5)
Quarter: 2025Q2

REPORT INFORMATION
  Report Type: Report from Study
  Country: JP (occurrence: JP)
  Receive Date: 20230904
  Receipt Date: 20250617
  Transmission Date: 20250717
  Serious: Yes (Hospitalization, Other)
  Sender: ASTELLAS
  Company Number: JP-ASTELLAS-2022JP005783

PATIENT
  Age: 79 Year
  Sex: Male
  Weight: 54 kg

DRUGS (17)
  1. PADCEV [Suspect]
     Active Substance: ENFORTUMAB VEDOTIN-EJFV
     Indication: Transitional cell carcinoma
     Dosage: 90 MG, ONCE WEEKLY
     Route: 065
     Dates: start: 202203
  2. PADCEV [Suspect]
     Active Substance: ENFORTUMAB VEDOTIN-EJFV
     Indication: Bladder cancer
     Route: 042
     Dates: start: 20220315, end: 20220329
  3. PADCEV [Suspect]
     Active Substance: ENFORTUMAB VEDOTIN-EJFV
     Indication: Bladder cancer
     Route: 065
     Dates: start: 20220823, end: 20220906
  4. PADCEV [Suspect]
     Active Substance: ENFORTUMAB VEDOTIN-EJFV
     Route: 065
     Dates: start: 20221108
  5. LOXOPROFEN [Suspect]
     Active Substance: LOXOPROFEN
     Indication: Product used for unknown indication
     Route: 048
     Dates: start: 20180523
  6. CISPLATIN [Concomitant]
     Active Substance: CISPLATIN
     Indication: Transitional cell carcinoma
     Route: 065
     Dates: start: 20180911, end: 20181019
  7. CISPLATIN [Concomitant]
     Active Substance: CISPLATIN
     Indication: Bladder cancer
     Route: 065
     Dates: start: 20210512, end: 20220125
  8. CISPLATIN [Concomitant]
     Active Substance: CISPLATIN
     Indication: Bladder cancer
  9. GEMCITABINE HYDROCHLORIDE [Concomitant]
     Active Substance: GEMCITABINE HYDROCHLORIDE
     Indication: Transitional cell carcinoma
     Route: 065
     Dates: start: 20180911, end: 20181019
  10. GEMCITABINE HYDROCHLORIDE [Concomitant]
     Active Substance: GEMCITABINE HYDROCHLORIDE
     Indication: Bladder cancer
     Route: 065
     Dates: start: 20210512, end: 20220125
  11. GEMCITABINE HYDROCHLORIDE [Concomitant]
     Active Substance: GEMCITABINE HYDROCHLORIDE
     Indication: Bladder cancer
  12. MIYA-BM [Concomitant]
     Active Substance: CLOSTRIDIUM BUTYRICUM SPORES STRAIN M-55
     Indication: Diarrhoea
     Dosage: 1 DF, THRICE DAILY
     Route: 048
     Dates: start: 20220327, end: 20220423
  13. LOPERAMIDE [Concomitant]
     Active Substance: LOPERAMIDE
     Indication: Diarrhoea
     Dosage: 1 MG, THRICE DAILY
     Route: 048
     Dates: start: 20220327, end: 20220423
  14. ALBUMIN TANNATE [Concomitant]
     Active Substance: ALBUMIN TANNATE
     Indication: Diarrhoea
     Dosage: 1 G, THRICE DAILY
     Route: 048
     Dates: start: 20220327, end: 20220423
  15. LANSOPRAZOLE [Concomitant]
     Active Substance: LANSOPRAZOLE
     Indication: Duodenal ulcer
     Dosage: 15 MG, ONCE DAILY
     Route: 048
     Dates: start: 20220401
  16. FUNGIZONE [Concomitant]
     Active Substance: AMPHOTERICIN B
     Indication: Stomatitis
     Dosage: 1 ML, THRICE DAILY
     Route: 048
     Dates: start: 20220404, end: 20220412
  17. FUNGIZONE [Concomitant]
     Active Substance: AMPHOTERICIN B
     Indication: Oesophageal candidiasis

REACTIONS (11)
  - Duodenal ulcer [Recovered/Resolved]
  - Diarrhoea [Recovered/Resolved]
  - Gastric ulcer [Unknown]
  - Enterocolitis [Unknown]
  - Stomatitis [Recovered/Resolved]
  - Oesophageal candidiasis [Recovered/Resolved]
  - Febrile neutropenia [Recovered/Resolved]
  - Ulcer [Unknown]
  - Skin disorder [Unknown]
  - Inappropriate schedule of product administration [Unknown]
  - Off label use [Unknown]

NARRATIVE: CASE EVENT DATE: 20220323
